FAERS Safety Report 4941468-1 (Version None)
Quarter: 2006Q1

REPORT INFORMATION
  Report Type: 
  Country: None (occurrence: None)
  Receive Date: 20060313
  Receipt Date: 20050915
  Transmission Date: 20060701
  Serious: Yes (Hospitalization, Other)
  Sender: FDA-Public Use
  Company Number: US-MERCK-0603USA01449

PATIENT
  Age: 60 Year
  Sex: Female
  Weight: 63 kg

DRUGS (6)
  1. VIOXX [Suspect]
     Indication: BACK PAIN
     Route: 048
     Dates: start: 20010401
  2. VIOXX [Suspect]
     Route: 048
     Dates: start: 20010401
  3. VIOXX [Suspect]
     Route: 048
     Dates: start: 20000401
  4. VIOXX [Suspect]
     Indication: ARTHRALGIA
     Route: 048
     Dates: start: 20010401
  5. VIOXX [Suspect]
     Route: 048
     Dates: start: 20010401
  6. VIOXX [Suspect]
     Route: 048
     Dates: start: 20000401

REACTIONS (45)
  - ACCELERATED HYPERTENSION [None]
  - ACUTE CORONARY SYNDROME [None]
  - ACUTE SINUSITIS [None]
  - ANGINA UNSTABLE [None]
  - ANXIETY [None]
  - ASTHMA [None]
  - ATRIOVENTRICULAR BLOCK [None]
  - BRONCHITIS [None]
  - CANDIDIASIS [None]
  - CARDIAC FAILURE CONGESTIVE [None]
  - CARDIOMYOPATHY [None]
  - CEREBROVASCULAR ACCIDENT [None]
  - CHRONIC OBSTRUCTIVE PULMONARY DISEASE [None]
  - CORONARY ARTERY DISEASE [None]
  - CORONARY ARTERY RESTENOSIS [None]
  - CORONARY ARTERY STENOSIS [None]
  - DEMYELINATING POLYNEUROPATHY [None]
  - DEPRESSION [None]
  - DIVERTICULITIS [None]
  - DRUG HYPERSENSITIVITY [None]
  - DYSPEPSIA [None]
  - DYSPNOEA EXERTIONAL [None]
  - GENITAL PRURITUS FEMALE [None]
  - HYPERTENSION [None]
  - INFECTION [None]
  - LARYNGITIS [None]
  - MITRAL VALVE INCOMPETENCE [None]
  - MUSCLE HAEMORRHAGE [None]
  - MYOCARDIAL INFARCTION [None]
  - MYOCARDIAL ISCHAEMIA [None]
  - NAUSEA [None]
  - NON-CARDIAC CHEST PAIN [None]
  - OESOPHAGEAL DISORDER [None]
  - OSTEOARTHRITIS [None]
  - PALPITATIONS [None]
  - POLLAKIURIA [None]
  - RASH [None]
  - SPINAL COLUMN STENOSIS [None]
  - SPINAL DECOMPRESSION [None]
  - SPINAL OSTEOARTHRITIS [None]
  - SUBENDOCARDIAL ISCHAEMIA [None]
  - TRICUSPID VALVE INCOMPETENCE [None]
  - UPPER RESPIRATORY TRACT INFECTION [None]
  - URINARY TRACT INFECTION [None]
  - VENTRICULAR DYSFUNCTION [None]
